FAERS Safety Report 7018573-1 (Version None)
Quarter: 2010Q3

REPORT INFORMATION
  Report Type: 
  Country: None (occurrence: None)
  Receive Date: 20100922
  Receipt Date: 20100917
  Transmission Date: 20110219
  Serious: Yes (Life-Threatening)
  Sender: FDA-Public Use
  Company Number: 2010TJ0150

PATIENT
  Age: 19 Year
  Sex: Female

DRUGS (1)
  1. TWINJECT 0.3 [Suspect]
     Dosage: 0.3 MG,
     Dates: start: 20100914, end: 20100914

REACTIONS (2)
  - DEVICE MALFUNCTION [None]
  - SYRINGE ISSUE [None]
